FAERS Safety Report 6955850-4 (Version None)
Quarter: 2010Q3

REPORT INFORMATION
  Report Type: 
  Country: None (occurrence: None)
  Receive Date: 20100830
  Receipt Date: 20100820
  Transmission Date: 20110219
  Serious: Yes (Other)
  Sender: FDA-Public Use
  Company Number: FR-ROCHE-722839

PATIENT
  Age: 79 Year
  Sex: Female

DRUGS (3)
  1. HERCEPTIN [Suspect]
     Route: 065
     Dates: start: 20080901, end: 20090301
  2. HERCEPTIN [Suspect]
     Route: 065
     Dates: start: 20090301
  3. PACLITAXEL [Concomitant]
     Dates: start: 20080901, end: 20090301

REACTIONS (7)
  - AORTIC THROMBOSIS [None]
  - ARRHYTHMIA [None]
  - MALIGNANT NEOPLASM PROGRESSION [None]
  - MITRAL VALVE INCOMPETENCE [None]
  - ORTHOSTATIC HYPOTENSION [None]
  - PHLEBITIS [None]
  - PULMONARY EMBOLISM [None]
